FAERS Safety Report 17688588 (Version 6)
Quarter: 2020Q3

REPORT INFORMATION
  Report Type: Report from Study
  Country: US (occurrence: US)
  Receive Date: 20200421
  Receipt Date: 20200908
  Transmission Date: 20201102
  Serious: Yes (Other)
  Sender: FDA-Public Use
  Company Number: NVSC2020US106789

PATIENT
  Age: 55 Year
  Sex: Female

DRUGS (3)
  1. COSENTYX [Suspect]
     Active Substance: SECUKINUMAB
     Indication: PSORIATIC ARTHROPATHY
     Dosage: UNK MG
     Route: 065
  2. COSENTYX [Suspect]
     Active Substance: SECUKINUMAB
     Route: 058
  3. COSENTYX [Suspect]
     Active Substance: SECUKINUMAB
     Dosage: 150 MG, QMO BENEATH THE SKIN
     Route: 058

REACTIONS (8)
  - Bacterial infection [Unknown]
  - Ulcer [Recovering/Resolving]
  - Ligament sprain [Unknown]
  - Pain [Unknown]
  - Fall [Unknown]
  - Pruritus [Unknown]
  - Cough [Unknown]
  - Staphylococcal skin infection [Recovering/Resolving]

NARRATIVE: CASE EVENT DATE: 20200420
